FAERS Safety Report 7226511-1 (Version None)
Quarter: 2011Q1

REPORT INFORMATION
  Report Type: 
  Country: None (occurrence: None)
  Receive Date: 20110114
  Receipt Date: 20110106
  Transmission Date: 20110831
  Serious: Yes (Other)
  Sender: FDA-Public Use
  Company Number: US-JNJFOC-20110102130

PATIENT
  Sex: Female
  Weight: 68.04 kg

DRUGS (3)
  1. DURAGESIC-50 [Suspect]
     Dosage: NDC: 50458-094-05
     Route: 062
  2. KLONOPIN [Concomitant]
     Indication: ANXIETY
     Route: 048
  3. DURAGESIC-50 [Suspect]
     Indication: BACK PAIN
     Dosage: 75 UG/HR + 75 UG/HR
     Route: 062

REACTIONS (13)
  - INJURY [None]
  - PANIC ATTACK [None]
  - TOOTH HYPOPLASIA [None]
  - PRODUCT ADHESION ISSUE [None]
  - TEETH BRITTLE [None]
  - WITHDRAWAL SYNDROME [None]
  - AGITATION [None]
  - TOOTH DISORDER [None]
  - FEELING ABNORMAL [None]
  - DEVICE LEAKAGE [None]
  - DEPRESSION [None]
  - TOOTH FRACTURE [None]
  - PRODUCT QUALITY ISSUE [None]
